FAERS Safety Report 24021061 (Version 1)
Quarter: 2024Q2

REPORT INFORMATION
  Report Type: Spontaneous
  Country: US (occurrence: US)
  Receive Date: 20240627
  Receipt Date: 20240627
  Transmission Date: 20240716
  Serious: Yes (Other)
  Sender: FDA-Public Use
  Company Number: US-ABBVIE-5816061

PATIENT
  Age: 74 Year
  Sex: Female

DRUGS (1)
  1. VENCLEXTA [Suspect]
     Active Substance: VENETOCLAX
     Indication: Myelodysplastic syndrome with excess blasts
     Dosage: QUANTITY- 120/4 TABS (400MG),?FORM STRENGTH: 100MILLIGRAM
     Route: 048
     Dates: start: 20240603

REACTIONS (4)
  - Agranulocytosis [Unknown]
  - Myelodysplastic syndrome with excess blasts [Unknown]
  - Anaemia [Unknown]
  - Off label use [Unknown]

NARRATIVE: CASE EVENT DATE: 20240601
